FAERS Safety Report 4459306-2 (Version None)
Quarter: 2004Q3

REPORT INFORMATION
  Report Type: 
  Country: None (occurrence: None)
  Receive Date: 20040924
  Receipt Date: 20040820
  Transmission Date: 20050211
  Serious: Yes (Other)
  Sender: FDA-Public Use
  Company Number: 2199

PATIENT

DRUGS (1)
  1. PROPOXYPHENE HCL [Suspect]
     Dosage: ORAL
     Route: 048

REACTIONS (3)
  - HEART RATE INCREASED [None]
  - NAUSEA [None]
  - PYREXIA [None]
